FAERS Safety Report 9517958 (Version 1)
Quarter: 2013Q3

REPORT INFORMATION
  Report Type: Spontaneous
  Country: US (occurrence: US)
  Receive Date: 20130912
  Receipt Date: 20130912
  Transmission Date: 20140515
  Serious: No
  Sender: FDA-Public Use
  Company Number: US-PFIZER INC-2013261724

PATIENT
  Age: 41 Year
  Sex: Male
  Weight: 103.86 kg

DRUGS (2)
  1. CHANTIX [Suspect]
     Indication: SMOKING CESSATION THERAPY
     Dosage: 0.5 MG, 1X/DAY
     Route: 048
     Dates: start: 201303, end: 201305
  2. CHANTIX [Suspect]
     Dosage: 0.5 MG, 1X/DAY
     Route: 048
     Dates: start: 201308

REACTIONS (5)
  - Gastric disorder [Unknown]
  - Abdominal distension [Unknown]
  - Weight increased [Unknown]
  - Abdominal pain upper [Unknown]
  - Nausea [Unknown]
